FAERS Safety Report 16528621 (Version 7)
Quarter: 2019Q4

REPORT INFORMATION
  Report Type: Report from Study
  Country: US (occurrence: US)
  Receive Date: 20190703
  Receipt Date: 20191126
  Transmission Date: 20200122
  Serious: Yes (Death, Hospitalization)
  Sender: FDA-Public Use
  Company Number: US-ACTELION-A-US2019-192475

PATIENT
  Age: 27 Year
  Sex: Female
  Weight: 78.01 kg

DRUGS (8)
  1. REVATIO [Concomitant]
     Active Substance: SILDENAFIL CITRATE
  2. VELETRI [Suspect]
     Active Substance: EPOPROSTENOL
     Dosage: 39 NG/KG, PER MIN
     Route: 042
  3. SILDENAFIL CITRATE. [Concomitant]
     Active Substance: SILDENAFIL CITRATE
  4. VELETRI [Suspect]
     Active Substance: EPOPROSTENOL
     Dosage: 24 NG/KG, PER MIN
     Route: 042
  5. DIGOXIN. [Concomitant]
     Active Substance: DIGOXIN
  6. OPSUMIT [Suspect]
     Active Substance: MACITENTAN
     Indication: PULMONARY ARTERIAL HYPERTENSION
     Dosage: 10 MG, QD
     Route: 048
     Dates: start: 20190525
  7. VELETRI [Suspect]
     Active Substance: EPOPROSTENOL
     Indication: PULMONARY ARTERIAL HYPERTENSION
     Dosage: 12.8 NG/KG, PER MIN
     Route: 042
  8. ALDACTONE [Concomitant]
     Active Substance: SPIRONOLACTONE

REACTIONS (18)
  - Tachycardia [Recovered/Resolved]
  - Right ventricular failure [Unknown]
  - Dyspnoea [Unknown]
  - Pericardial effusion [Unknown]
  - Respiratory failure [Not Recovered/Not Resolved]
  - Death [Fatal]
  - Pulmonary arterial pressure increased [Unknown]
  - Dizziness [Unknown]
  - Left ventricular end-diastolic pressure increased [Unknown]
  - Stress [Unknown]
  - Lung transplant [Unknown]
  - Atrial fibrillation [Unknown]
  - Fluid overload [Unknown]
  - Supraventricular tachycardia [Unknown]
  - Pulmonary arterial hypertension [Unknown]
  - Pericardial drainage [Unknown]
  - Hypotension [Unknown]
  - Palpitations [Recovered/Resolved]

NARRATIVE: CASE EVENT DATE: 20190525
